FAERS Safety Report 9515908 (Version 1)
Quarter: 2013Q3

REPORT INFORMATION
  Report Type: Report from Study
  Country: CA (occurrence: CA)
  Receive Date: 20130911
  Receipt Date: 20130911
  Transmission Date: 20140515
  Serious: Yes (Other)
  Sender: FDA-Public Use
  Company Number: CA-JNJFOC-20130902418

PATIENT
  Age: 55 Year
  Sex: Male
  Weight: 94.7 kg

DRUGS (8)
  1. REMICADE [Suspect]
     Indication: COLITIS ULCERATIVE
     Dosage: 10TH INFUSION
     Route: 042
     Dates: start: 20130903
  2. REMICADE [Suspect]
     Indication: COLITIS ULCERATIVE
     Route: 042
     Dates: start: 20130711
  3. REMICADE [Suspect]
     Indication: COLITIS ULCERATIVE
     Route: 042
     Dates: start: 20120611
  4. AZATHIOPRINE [Concomitant]
     Route: 065
  5. TARGIN [Concomitant]
     Route: 065
  6. ZOPICLONE [Concomitant]
     Route: 065
  7. MEZAVANT [Concomitant]
     Route: 065
  8. TOPIRAMATE [Concomitant]
     Route: 065

REACTIONS (1)
  - Fistula [Recovered/Resolved]
